FAERS Safety Report 18284897 (Version 1)
Quarter: 2020Q3

REPORT INFORMATION
  Report Type: Spontaneous
  Country: IN (occurrence: IN)
  Receive Date: 20200918
  Receipt Date: 20200918
  Transmission Date: 20201103
  Serious: Yes (Death, Hospitalization, Other)
  Sender: FDA-Public Use
  Company Number: IN-JNJFOC-20200915848

PATIENT
  Age: 60 Year
  Sex: Female
  Weight: 61 kg

DRUGS (9)
  1. DELAMANID [Suspect]
     Active Substance: DELAMANID
     Indication: TUBERCULOSIS
     Route: 065
     Dates: start: 20191126
  2. CLOFAZIMINE [Suspect]
     Active Substance: CLOFAZIMINE
     Indication: TUBERCULOSIS
     Route: 065
     Dates: start: 20190826
  3. ONDANSETRON [Concomitant]
     Active Substance: ONDANSETRON
     Indication: VOMITING
     Route: 065
     Dates: start: 20190826
  4. AMITRIPTYLINE                      /00002202/ [Concomitant]
     Active Substance: AMITRIPTYLINE
     Indication: NEUROPATHY PERIPHERAL
     Route: 065
     Dates: start: 20190826
  5. BEDAQUILINE [Suspect]
     Active Substance: BEDAQUILINE
     Indication: TUBERCULOSIS
     Route: 048
     Dates: start: 20190826
  6. PREGABA [Concomitant]
     Active Substance: PREGABALIN
     Indication: NEUROPATHY PERIPHERAL
     Route: 065
     Dates: start: 20190826
  7. OMEPRAZOLE. [Concomitant]
     Active Substance: OMEPRAZOLE
     Indication: GASTRITIS
     Route: 065
  8. LINEZOLID. [Suspect]
     Active Substance: LINEZOLID
     Indication: TUBERCULOSIS
     Route: 065
     Dates: start: 20190826
  9. METOCLOPRAMIDE. [Concomitant]
     Active Substance: METOCLOPRAMIDE
     Indication: VOMITING
     Route: 065
     Dates: start: 20190826

REACTIONS (4)
  - Septic shock [Fatal]
  - Off label use [Unknown]
  - Intentional product use issue [Unknown]
  - Coronavirus infection [Unknown]

NARRATIVE: CASE EVENT DATE: 202006
